FAERS Safety Report 7444812-9 (Version None)
Quarter: 2011Q2

REPORT INFORMATION
  Report Type: 
  Country: None (occurrence: None)
  Receive Date: 20110426
  Receipt Date: 20110426
  Transmission Date: 20111010
  Serious: Yes (Life-Threatening, Other)
  Sender: FDA-Public Use
  Company Number: None

PATIENT
  Age: 55 Year
  Sex: Female
  Weight: 86.1834 kg

DRUGS (2)
  1. CYMBALTA [Suspect]
     Indication: ANXIETY
     Dosage: ONE TABLET EVERYDAY PO
     Route: 048
     Dates: start: 20100501, end: 20110401
  2. CYMBALTA [Suspect]
     Indication: DEPRESSION
     Dosage: ONE TABLET EVERYDAY PO
     Route: 048
     Dates: start: 20100501, end: 20110401

REACTIONS (5)
  - HEPATIC NECROSIS [None]
  - HEPATIC MASS [None]
  - MYALGIA [None]
  - BLOOD PRESSURE INCREASED [None]
  - OCULAR HYPERAEMIA [None]
